FAERS Safety Report 18524427 (Version 2)
Quarter: 2020Q4

REPORT INFORMATION
  Report Type: Report from Study
  Country: US (occurrence: US)
  Receive Date: 20201119
  Receipt Date: 20201219
  Transmission Date: 20210114
  Serious: Yes (Hospitalization, Other)
  Sender: FDA-Public Use
  Company Number: US-TAKEDA-2020TUS049810

PATIENT
  Age: 29 Year
  Sex: Female

DRUGS (8)
  1. TEDUGLUTIDE [Suspect]
     Active Substance: TEDUGLUTIDE
     Indication: SHORT-BOWEL SYNDROME
     Dosage: 2.66 MILLIGRAM, QD
     Route: 058
     Dates: start: 202010
  2. TEDUGLUTIDE [Suspect]
     Active Substance: TEDUGLUTIDE
     Dosage: 2.66 UNK
     Route: 058
     Dates: start: 20201008
  3. TEDUGLUTIDE [Suspect]
     Active Substance: TEDUGLUTIDE
     Dosage: 2.66 UNK
     Route: 058
     Dates: start: 20201008
  4. TEDUGLUTIDE [Suspect]
     Active Substance: TEDUGLUTIDE
     Indication: SHORT-BOWEL SYNDROME
     Dosage: 2.66 MILLIGRAM, QD
     Route: 058
     Dates: start: 202010
  5. TEDUGLUTIDE [Suspect]
     Active Substance: TEDUGLUTIDE
     Indication: SHORT-BOWEL SYNDROME
     Dosage: 2.66 MILLIGRAM, QD
     Route: 058
     Dates: start: 202010
  6. TEDUGLUTIDE [Suspect]
     Active Substance: TEDUGLUTIDE
     Indication: SHORT-BOWEL SYNDROME
     Dosage: 2.66 MILLIGRAM, QD
     Route: 058
     Dates: start: 202010
  7. TEDUGLUTIDE [Suspect]
     Active Substance: TEDUGLUTIDE
     Dosage: 2.66 UNK
     Route: 058
     Dates: start: 20201008
  8. TEDUGLUTIDE [Suspect]
     Active Substance: TEDUGLUTIDE
     Dosage: 2.66 UNK
     Route: 058
     Dates: start: 20201008

REACTIONS (5)
  - Injection site bruising [Unknown]
  - Gastroenteritis viral [Unknown]
  - Ovarian cyst ruptured [Unknown]
  - Sepsis [Unknown]
  - Liquid product physical issue [Unknown]

NARRATIVE: CASE EVENT DATE: 20201207
